FAERS Safety Report 9982172 (Version 1)
Quarter: 2014Q1

REPORT INFORMATION
  Report Type: Spontaneous
  Country: US (occurrence: None)
  Receive Date: 20140306
  Receipt Date: 20140306
  Transmission Date: 20141002
  Serious: Yes (Hospitalization)
  Sender: FDA-Public Use
  Company Number: None

PATIENT
  Age: 58 Year
  Sex: Male
  Weight: 79.07 kg

DRUGS (9)
  1. PLERIXAFOR AMD3100 [Suspect]
     Indication: GLIOBLASTOMA
     Dosage: 21 OF 28 DAYS
     Dates: start: 20140127, end: 20140216
  2. ACETYLSALICYLIC ACID [Concomitant]
  3. CLARITIN [Concomitant]
  4. HYDROCHLOROTHIAZIDE [Concomitant]
  5. KEPPRA [Concomitant]
  6. LEVETIRACERAM [Concomitant]
  7. MELATONIN [Concomitant]
  8. NYSTATIN SUSPENSION [Concomitant]
  9. SIMVASTATIN [Concomitant]

REACTIONS (4)
  - Aphasia [None]
  - Speech disorder [None]
  - Cerebral infarction [None]
  - Transient ischaemic attack [None]
